FAERS Safety Report 20582298 (Version 1)
Quarter: 2022Q1

REPORT INFORMATION
  Report Type: Spontaneous
  Country: FR (occurrence: FR)
  Receive Date: 20220311
  Receipt Date: 20220311
  Transmission Date: 20220423
  Serious: Yes (Other)
  Sender: FDA-Public Use
  Company Number: FR-CADILA HEALTHCARE LIMITED-FR-ZYDUS-075128

PATIENT
  Sex: Female

DRUGS (5)
  1. SPRAVATO [Suspect]
     Active Substance: ESKETAMINE
     Indication: Depression
     Dosage: 84 MILLIGRAM(2 WEEKS)
  2. SPRAVATO [Suspect]
     Active Substance: ESKETAMINE
     Dosage: 84 MILLIGRAM(EVERY WEEK FOR 4 WEEKS)
  3. SPRAVATO [Suspect]
     Active Substance: ESKETAMINE
     Dosage: 84 MILLIGRAM(EVERY 3 WEEKS)
  4. DULOXETINE [Suspect]
     Active Substance: DULOXETINE
     Indication: Depression
  5. AMITRIPTYLINE [Suspect]
     Active Substance: AMITRIPTYLINE
     Indication: Depression

REACTIONS (1)
  - Hypertension [Unknown]
